FAERS Safety Report 9091869 (Version 1)
Quarter: 2013Q1

REPORT INFORMATION
  Report Type: Report from Study
  Country: US (occurrence: US)
  Receive Date: 20130131
  Receipt Date: 20130131
  Transmission Date: 20140127
  Serious: No
  Sender: FDA-Public Use
  Company Number: US-ABBOTT-12P-163-1004674-00

PATIENT
  Age: 41 Year
  Sex: Female
  Weight: 74.91 kg

DRUGS (9)
  1. HUMIRA [Suspect]
     Indication: RHEUMATOID ARTHRITIS
     Dates: start: 201203, end: 20120907
  2. PLAQUINEL [Concomitant]
     Indication: RHEUMATOID ARTHRITIS
  3. METHOTREXATE [Concomitant]
     Indication: RHEUMATOID ARTHRITIS
  4. TRAMADOL [Concomitant]
     Indication: ARTHRALGIA
  5. TRAZODONE [Concomitant]
     Indication: DEPRESSION
  6. PREDNISONE [Concomitant]
     Indication: RHEUMATOID ARTHRITIS
  7. FOLIC ACID [Concomitant]
     Indication: RHEUMATOID ARTHRITIS
  8. ADVAIR [Concomitant]
     Indication: ASTHMA
  9. ALPRAZOLAM [Concomitant]
     Indication: ANXIETY

REACTIONS (1)
  - Herpes zoster [Recovered/Resolved]
